FAERS Safety Report 7962985-6 (Version None)
Quarter: 2011Q4

REPORT INFORMATION
  Report Type: 
  Country: None (occurrence: None)
  Receive Date: 20111207
  Receipt Date: 20111128
  Transmission Date: 20120403
  Serious: Yes (Other)
  Sender: FDA-Public Use
  Company Number: US-ASTRAZENECA-2011SE72290

PATIENT
  Age: 64 Year
  Sex: Female
  Weight: 81.6 kg

DRUGS (3)
  1. CRESTOR [Suspect]
     Indication: BLOOD CHOLESTEROL
     Route: 048
     Dates: start: 20060101
  2. DAILY VITAMIN [Concomitant]
  3. FISH OIL [Concomitant]

REACTIONS (2)
  - COLONIC POLYP [None]
  - COLON CANCER [None]
